FAERS Safety Report 23838739 (Version 1)
Quarter: 2024Q2

REPORT INFORMATION
  Report Type: Spontaneous
  Country: GB (occurrence: GB)
  Receive Date: 20240509
  Receipt Date: 20240509
  Transmission Date: 20240716
  Serious: Yes (Other)
  Sender: FDA-Public Use
  Company Number: GB-009507513-2405GBR001386

PATIENT
  Age: 49 Year
  Sex: Male

DRUGS (2)
  1. PEMBROLIZUMAB [Suspect]
     Active Substance: PEMBROLIZUMAB
     Indication: Cholangiocarcinoma
     Dosage: UNK, ONCE ON DAY 1 OF EACH 21-DAY CYCLE
     Dates: start: 202009, end: 202112
  2. CISPLATIN;GEMCITABINE [Concomitant]
     Indication: Cholangiocarcinoma
     Dosage: UNK (DOSE REDUCTION), ONCE ON DAYS 1 AND 8 OF EACH 21-DAY CYCLE
     Dates: start: 202009, end: 2021

REACTIONS (6)
  - Thrombocytopenia [Unknown]
  - Fatigue [Unknown]
  - Nausea [Unknown]
  - Alopecia [Unknown]
  - Alanine aminotransferase increased [Unknown]
  - Off label use [Unknown]

NARRATIVE: CASE EVENT DATE: 20200901
